FAERS Safety Report 15688349 (Version 1)
Quarter: 2018Q4

REPORT INFORMATION
  Report Type: Spontaneous
  Country: US (occurrence: US)
  Receive Date: 20181205
  Receipt Date: 20181205
  Transmission Date: 20190205
  Serious: No
  Sender: FDA-Public Use
  Company Number: US-HIKMA PHARMACEUTICALS USA INC.-US-H14001-18-04587

PATIENT
  Sex: Male
  Weight: 82 kg

DRUGS (1)
  1. IPRATROPIUM BROMIDE. [Suspect]
     Active Substance: IPRATROPIUM BROMIDE
     Indication: NASAL CONGESTION
     Dosage: ONE SPRAY EACH NOSTRIL
     Route: 045
     Dates: start: 201805

REACTIONS (2)
  - Nasal oedema [Not Recovered/Not Resolved]
  - Off label use [Not Recovered/Not Resolved]
